FAERS Safety Report 23627217 (Version 2)
Quarter: 2024Q2

REPORT INFORMATION
  Report Type: Report from Study
  Country: US (occurrence: US)
  Receive Date: 20240313
  Receipt Date: 20240606
  Transmission Date: 20240715
  Serious: No
  Sender: FDA-Public Use
  Company Number: US-SPRINGWORKS THERAPEUTICS-SW-001228

PATIENT
  Age: 27 Year
  Sex: Male
  Weight: 122.45 kg

DRUGS (3)
  1. NIROGACESTAT [Suspect]
     Active Substance: NIROGACESTAT
     Indication: Product used for unknown indication
     Dosage: 50 MILLIGRAM, BID
     Route: 048
     Dates: start: 20240111
  2. NIROGACESTAT [Suspect]
     Active Substance: NIROGACESTAT
     Dosage: 100 MILLIGRAM, BID
     Route: 048
  3. SULINDAC [Suspect]
     Active Substance: SULINDAC
     Indication: Product used for unknown indication

REACTIONS (9)
  - Paraesthesia oral [Recovered/Resolved]
  - Drug interaction [Recovered/Resolved]
  - Skin exfoliation [Unknown]
  - Haemoptysis [Unknown]
  - Urticaria [Unknown]
  - Skin graft infection [Not Recovered/Not Resolved]
  - Epistaxis [Unknown]
  - Diarrhoea [Unknown]
  - Rash [Unknown]

NARRATIVE: CASE EVENT DATE: 20240113
